FAERS Safety Report 18385788 (Version 5)
Quarter: 2021Q1

REPORT INFORMATION
  Report Type: Spontaneous
  Country: SE (occurrence: SE)
  Receive Date: 20201015
  Receipt Date: 20210106
  Transmission Date: 20210419
  Serious: Yes (Other)
  Sender: FDA-Public Use
  Company Number: SE-REGENERON PHARMACEUTICALS, INC.-2020-82557

PATIENT

DRUGS (3)
  1. OXIBUPROKAIN [Concomitant]
     Indication: PRODUCT USED FOR UNKNOWN INDICATION
  2. EYLEA [Suspect]
     Active Substance: AFLIBERCEPT
     Indication: AGE-RELATED MACULAR DEGENERATION
     Dosage: BOTH EYES (BATCH THAT CAUSED INJECTION SITE PAIN)
     Route: 031
     Dates: start: 20200819
  3. EYLEA [Suspect]
     Active Substance: AFLIBERCEPT
     Indication: POLYPOIDAL CHOROIDAL VASCULOPATHY
     Dosage: LEFT EYE (BATCH THAT CAUSED INCRED IOP AND TRANSIENT BLINDNESS)
     Route: 031
     Dates: start: 20200917

REACTIONS (5)
  - Device use issue [Unknown]
  - Intraocular pressure increased [Recovering/Resolving]
  - Intraocular pressure increased [Recovered/Resolved]
  - Blindness transient [Unknown]
  - Injection site pain [Unknown]

NARRATIVE: CASE EVENT DATE: 20200819
